FAERS Safety Report 21408459 (Version 2)
Quarter: 2022Q4

REPORT INFORMATION
  Report Type: Spontaneous
  Country: CA (occurrence: CA)
  Receive Date: 20221004
  Receipt Date: 20221007
  Transmission Date: 20230113
  Serious: Yes (Death)
  Sender: FDA-Public Use
  Company Number: CA-JNJFOC-20220957900

PATIENT
  Age: 12 Year
  Sex: Female

DRUGS (1)
  1. TYLENOL 8 HR ARTHRITIS PAIN [Suspect]
     Active Substance: ACETAMINOPHEN
     Indication: Product used for unknown indication
     Route: 065

REACTIONS (4)
  - Physical product label issue [Fatal]
  - Product availability issue [Fatal]
  - Product closure issue [Fatal]
  - Overdose [Fatal]
